FAERS Safety Report 19389554 (Version 1)
Quarter: 2021Q2

REPORT INFORMATION
  Report Type: Report from Study
  Country: None (occurrence: ES)
  Receive Date: 20210608
  Receipt Date: 20210608
  Transmission Date: 20210717
  Serious: Yes (Death, Hospitalization, Other)
  Sender: FDA-Public Use
  Company Number: ES-ABBVIE-21K-144-3938653-00

PATIENT
  Sex: Male

DRUGS (2)
  1. DUODOPA [Suspect]
     Active Substance: CARBIDOPA\LEVODOPA
     Indication: PARKINSON^S DISEASE
     Route: 050
     Dates: start: 20151204
  2. DUODOPA [Suspect]
     Active Substance: CARBIDOPA\LEVODOPA

REACTIONS (7)
  - Apnoea [Fatal]
  - Malaise [Unknown]
  - Pneumonia aspiration [Fatal]
  - Asphyxia [Unknown]
  - Suspected COVID-19 [Unknown]
  - General physical health deterioration [Unknown]
  - Choking [Unknown]

NARRATIVE: CASE EVENT DATE: 2021
